FAERS Safety Report 4492027-9 (Version None)
Quarter: 2004Q4

REPORT INFORMATION
  Report Type: 
  Country: None (occurrence: None)
  Receive Date: 20041029
  Receipt Date: 20041020
  Transmission Date: 20050328
  Serious: Yes (Hospitalization)
  Sender: FDA-Public Use
  Company Number: HQWYE503724AUG04

PATIENT
  Age: 48 Year
  Sex: Male

DRUGS (21)
  1. RAPAMUNE [Suspect]
     Indication: PROPHYLAXIS AGAINST TRANSPLANT REJECTION
     Dosage: 3 MG 1X PER 1 DAY
     Route: 048
     Dates: start: 20001115
  2. ASPIRIN [Concomitant]
  3. BUMETANIDE [Concomitant]
  4. PANTOZOL (PANTOPRAZOLE) [Concomitant]
  5. HYDRALAZINE HCL TAB [Concomitant]
  6. ATORVASTATIN (ATORVASTATIN) [Concomitant]
  7. CYPROHEPTADINE HCL [Concomitant]
  8. WARFARIN SODIUM [Concomitant]
  9. ALLOPURINOL [Concomitant]
  10. SERTRALINE HYDROCHLORIDE [Concomitant]
  11. POTASSIUM CHLORIDE [Concomitant]
  12. TRAMADOL HCL [Concomitant]
  13. DIAZEPAM [Concomitant]
  14. IRBESARTAN (IRBESARTAN) [Concomitant]
  15. NILSTAT (NYSTATIN) [Concomitant]
  16. DISOTHIAZIDE (HYDROCHLOROTHIAZIDE) [Concomitant]
  17. ACETAMINOPHEN [Concomitant]
  18. MYCOPHENOLATE MOFETIL (MYCOPHENOLATE MOFETIL) [Concomitant]
  19. COLOXYL WITH SENNA (DOCUSATE SODIUM/SENNOSIDE A+B) [Concomitant]
  20. GTN (GLYCERYL TRINITRATE) [Concomitant]
  21. GLICLAZIDE (GLICLAZIDE) [Concomitant]

REACTIONS (3)
  - CELLULITIS [None]
  - DYSPNOEA [None]
  - MALAISE [None]
